FAERS Safety Report 14236320 (Version 1)
Quarter: 2017Q4

REPORT INFORMATION
  Report Type: Spontaneous
  Country: US (occurrence: US)
  Receive Date: 20171129
  Receipt Date: 20171129
  Transmission Date: 20180321
  Serious: Yes (Life-Threatening, Hospitalization, Other)
  Sender: FDA-Public Use
  Company Number: US-ALVOGEN-2017-ALVOGEN-094152

PATIENT
  Age: 33 Year
  Sex: Female

DRUGS (1)
  1. OXYCODONE [Suspect]
     Active Substance: OXYCODONE
     Indication: PRODUCT USED FOR UNKNOWN INDICATION
     Dosage: ()

REACTIONS (7)
  - Respiratory failure [Unknown]
  - Sepsis [Unknown]
  - Overdose [Unknown]
  - Leukoencephalopathy [Recovered/Resolved]
  - Hypotension [Unknown]
  - Pneumonia aspiration [Unknown]
  - Loss of consciousness [Recovered/Resolved]
